FAERS Safety Report 15822202 (Version 1)
Quarter: 2019Q1

REPORT INFORMATION
  Report Type: Spontaneous
  Country: US (occurrence: US)
  Receive Date: 20190114
  Receipt Date: 20190114
  Transmission Date: 20190417
  Serious: Yes (Hospitalization)
  Sender: FDA-Public Use
  Company Number: US-ELI_LILLY_AND_COMPANY-US201901004737

PATIENT
  Age: 63 Year
  Sex: Male

DRUGS (1)
  1. HUMALOG [Suspect]
     Active Substance: INSULIN LISPRO
     Indication: DIABETES MELLITUS
     Dosage: UNK UNK, UNKNOWN
     Route: 065

REACTIONS (8)
  - Memory impairment [Unknown]
  - Pain in extremity [Unknown]
  - Product dose omission [Unknown]
  - Muscle spasms [Unknown]
  - Weight bearing difficulty [Unknown]
  - Blood glucose increased [Unknown]
  - Unresponsive to stimuli [Unknown]
  - Peripheral swelling [Unknown]

NARRATIVE: CASE EVENT DATE: 20180903
